FAERS Safety Report 17369003 (Version 1)
Quarter: 2020Q1

REPORT INFORMATION
  Report Type: Spontaneous
  Country: US (occurrence: US)
  Receive Date: 20200204
  Receipt Date: 20200204
  Transmission Date: 20200409
  Serious: No
  Sender: FDA-Public Use
  Company Number: US-ENDO PHARMACEUTICALS INC-2019-107257

PATIENT
  Age: 67 Year
  Sex: Male

DRUGS (2)
  1. BUPROPION HYDROCHLORIDE. [Suspect]
     Active Substance: BUPROPION HYDROCHLORIDE
     Indication: DEPRESSION
     Dosage: 150 MG, UNK
     Route: 065
     Dates: start: 20190808, end: 20190808
  2. GABAPENTIN. [Concomitant]
     Active Substance: GABAPENTIN
     Indication: ANXIETY

REACTIONS (5)
  - Depression [Unknown]
  - Drug ineffective [Unknown]
  - Cognitive disorder [Unknown]
  - Pain [Unknown]
  - Limb injury [Unknown]

NARRATIVE: CASE EVENT DATE: 20190808
